FAERS Safety Report 24117015 (Version 5)
Quarter: 2024Q3

REPORT INFORMATION
  Report Type: Spontaneous
  Country: CA (occurrence: CA)
  Receive Date: 20240722
  Receipt Date: 20240928
  Transmission Date: 20241016
  Serious: Yes (Other)
  Sender: CELLTRION
  Company Number: CA-PFIZER INC-202400212769

PATIENT

DRUGS (5)
  1. INFLECTRA [Suspect]
     Active Substance: INFLIXIMAB-DYYB
     Indication: Crohn^s disease
     Dosage: 5 MG/KG, WEEK 0 (W 0, 2, 6 THEN EVERY 8 WEEKS)
     Route: 042
     Dates: start: 20240529
  2. INFLECTRA [Suspect]
     Active Substance: INFLIXIMAB-DYYB
     Dosage: 5 MG/KG, AFTER 2 WEEKS AND 1 DAY (WEEK 2) (W 0, 2, 6 THEN EVERY 8 WEEKS)
     Route: 042
     Dates: start: 20240613
  3. INFLECTRA [Suspect]
     Active Substance: INFLIXIMAB-DYYB
     Dosage: 5MG/KG, WEEK 6 (W 0, 2, 6 THEN EVERY 8 WEEKS)
     Route: 042
     Dates: start: 20240711, end: 20240711
  4. INFLECTRA [Suspect]
     Active Substance: INFLIXIMAB-DYYB
     Dosage: 330 MG (5 MG/KG), AFTER 9 WEEKS AND 6 DAYS (W 0, 2, 6 THEN EVERY 8 WEEKS)
     Route: 042
     Dates: start: 20240918
  5. PREDNISONE [Concomitant]
     Active Substance: PREDNISONE
     Dosage: 1 DF (UNKNOWN)
     Dates: start: 202405

REACTIONS (8)
  - Blood pressure systolic increased [Not Recovered/Not Resolved]
  - Condition aggravated [Not Recovered/Not Resolved]
  - Rash pruritic [Not Recovered/Not Resolved]
  - Skin wound [Not Recovered/Not Resolved]
  - Tooth infection [Recovered/Resolved]
  - Arthralgia [Not Recovered/Not Resolved]
  - Anal fissure [Not Recovered/Not Resolved]
  - Inappropriate schedule of product administration [Unknown]

NARRATIVE: CASE EVENT DATE: 20240101
